FAERS Safety Report 25480102 (Version 1)
Quarter: 2025Q2

REPORT INFORMATION
  Report Type: Spontaneous
  Country: US (occurrence: None)
  Receive Date: 20250625
  Receipt Date: 20250625
  Transmission Date: 20250716
  Serious: Yes (Death)
  Sender: FDA-CTU
  Company Number: None

PATIENT
  Age: 73 Year
  Sex: Male
  Weight: 87.6 kg

DRUGS (2)
  1. PACLITAXEL [Suspect]
     Active Substance: PACLITAXEL
     Dosage: FREQUENCY : WEEKLY;?
     Route: 041
     Dates: start: 20250512
  2. CARBOPLATIN [Concomitant]
     Active Substance: CARBOPLATIN

REACTIONS (6)
  - Seizure like phenomena [None]
  - Transfusion reaction [None]
  - Cardio-respiratory arrest [None]
  - Pupil fixed [None]
  - Myoclonus [None]
  - Brain injury [None]

NARRATIVE: CASE EVENT DATE: 20250528
